FAERS Safety Report 9067720 (Version 1)
Quarter: 2013Q1

REPORT INFORMATION
  Report Type: Spontaneous
  Country: US (occurrence: US)
  Receive Date: 20130206
  Receipt Date: 20130206
  Transmission Date: 20140127
  Serious: No
  Sender: FDA-Public Use
  Company Number: US-PFIZER INC-2013049502

PATIENT
  Age: 54 Year
  Sex: Male
  Weight: 99.77 kg

DRUGS (4)
  1. SERTRALINE HCL [Suspect]
     Indication: DEPRESSION
     Dosage: 400 MG, 1X/DAY
     Route: 048
  2. SERTRALINE HCL [Suspect]
     Indication: OBSESSIVE-COMPULSIVE DISORDER
  3. SEROQUEL [Concomitant]
     Dosage: UNK
  4. BUSPIRONE [Concomitant]
     Dosage: UNK

REACTIONS (2)
  - Incorrect dose administered [Unknown]
  - Ejaculation delayed [Not Recovered/Not Resolved]
